FAERS Safety Report 4607924-0 (Version None)
Quarter: 2005Q1

REPORT INFORMATION
  Report Type: 
  Country: None (occurrence: None)
  Receive Date: 20050314
  Receipt Date: 20050304
  Transmission Date: 20050727
  Serious: Yes (Life-Threatening, Hospitalization)
  Sender: FDA-Public Use
  Company Number: DE-ABBOTT-05P-062-0293204-00

PATIENT
  Sex: Male

DRUGS (6)
  1. SEVORANE LIQUID [Suspect]
     Indication: INDUCTION OF ANAESTHESIA
     Route: 055
     Dates: start: 20050303, end: 20050303
  2. ATROPINE [Concomitant]
     Indication: DRUG USE FOR UNKNOWN INDICATION
     Route: 042
     Dates: start: 20050303, end: 20050303
  3. DEXAMETHASONE [Concomitant]
     Indication: DRUG USE FOR UNKNOWN INDICATION
     Route: 042
     Dates: start: 20050303, end: 20050303
  4. AMPICILLIN [Concomitant]
     Indication: DRUG USE FOR UNKNOWN INDICATION
     Route: 042
     Dates: start: 20050303, end: 20050303
  5. ULTIVA PERFUS [Concomitant]
     Indication: DRUG USE FOR UNKNOWN INDICATION
     Route: 042
     Dates: start: 20050303, end: 20050303
  6. ULTIVA PERFUS [Concomitant]
     Route: 042
     Dates: start: 20050303, end: 20050303

REACTIONS (2)
  - CARDIAC ARREST [None]
  - PULMONARY OEDEMA [None]
